FAERS Safety Report 21053255 (Version 1)
Quarter: 2022Q3

REPORT INFORMATION
  Report Type: Spontaneous
  Country: MY (occurrence: MY)
  Receive Date: 20220707
  Receipt Date: 20220707
  Transmission Date: 20221027
  Serious: Yes (Other)
  Sender: FDA-Public Use
  Company Number: MY-PFIZER INC-202200923246

PATIENT
  Age: 63 Year
  Sex: Male

DRUGS (1)
  1. SULFASALAZINE [Suspect]
     Active Substance: SULFASALAZINE
     Indication: Seronegative arthritis
     Dosage: 1000 MG, 2X/DAY
     Route: 048

REACTIONS (1)
  - Drug eruption [Recovered/Resolved]
